FAERS Safety Report 5549107-6 (Version None)
Quarter: 2007Q4

REPORT INFORMATION
  Report Type: 
  Country: None (occurrence: None)
  Receive Date: 20071210
  Receipt Date: 20070116
  Transmission Date: 20080405
  Serious: Yes (Hospitalization)
  Sender: FDA-Public Use
  Company Number: 135-011607

PATIENT
  Age: 19 Year
  Sex: Female

DRUGS (4)
  1. PROCHLORPERAZINE [Suspect]
     Indication: NAUSEA
  2. PROCHLORPERAZINE [Suspect]
     Indication: VOMITING
  3. DURICEF/TEFIDROX [Concomitant]
  4. HYDROCONE/VICODIN [Concomitant]

REACTIONS (6)
  - DROOLING [None]
  - DYSPNOEA [None]
  - NECK PAIN [None]
  - SPEECH DISORDER [None]
  - SWOLLEN TONGUE [None]
  - TREMOR [None]
